FAERS Safety Report 16015985 (Version 1)
Quarter: 2019Q1

REPORT INFORMATION
  Report Type: Spontaneous
  Country: FR (occurrence: FR)
  Receive Date: 20190228
  Receipt Date: 20190228
  Transmission Date: 20190418
  Serious: Yes (Hospitalization)
  Sender: FDA-Public Use
  Company Number: FR-ACCORD-109787

PATIENT
  Age: 65 Year
  Sex: Male

DRUGS (7)
  1. IRINOTECAN HOSPIRA [Suspect]
     Active Substance: IRINOTECAN
     Indication: ADENOCARCINOMA PANCREAS
     Route: 042
     Dates: start: 20180717
  2. OXALIPLATINE ACCORD [Suspect]
     Active Substance: OXALIPLATIN
     Indication: ADENOCARCINOMA PANCREAS
     Route: 042
     Dates: start: 20180717
  3. UVEDOSE [Concomitant]
     Active Substance: CHOLECALCIFEROL
  4. FENTANYL. [Concomitant]
     Active Substance: FENTANYL
  5. FLUOROURACILE ACCORD [Suspect]
     Active Substance: FLUOROURACIL
     Indication: ADENOCARCINOMA PANCREAS
     Route: 042
     Dates: start: 20180717
  6. MOVICOL [Concomitant]
     Active Substance: POLYETHYLENE GLYCOL 3350\POTASSIUM CHLORIDE\SODIUM BICARBONATE\SODIUM CHLORIDE
  7. PANTOPRAZOLE [Concomitant]
     Active Substance: PANTOPRAZOLE

REACTIONS (2)
  - Clostridium difficile colitis [Recovering/Resolving]
  - Septic shock [Recovered/Resolved]

NARRATIVE: CASE EVENT DATE: 20180724
